FAERS Safety Report 20088292 (Version 1)
Quarter: 2021Q4

REPORT INFORMATION
  Report Type: Other
  Country: MA (occurrence: None)
  Receive Date: 20211118
  Receipt Date: 20211118
  Transmission Date: 20220303
  Serious: Yes (Hospitalization, Other)
  Sender: FDA-Public Use
  Company Number: MA-Saptalis Pharmaceuticals,LLC-000141

PATIENT
  Age: 49 Year
  Sex: Female

DRUGS (1)
  1. METFORMIN [Suspect]
     Active Substance: METFORMIN HYDROCHLORIDE
     Indication: Product used for unknown indication
     Dosage: ONE TABLET OF 850 MG PER DAY FOR FIVE CONSECUTIVE DAYS

REACTIONS (2)
  - Toxic encephalopathy [Recovering/Resolving]
  - Contraindicated product administered [Unknown]
